FAERS Safety Report 16791932 (Version 1)
Quarter: 2019Q3

REPORT INFORMATION
  Report Type: Report from Study
  Country: DE (occurrence: DE)
  Receive Date: 20190910
  Receipt Date: 20190910
  Transmission Date: 20191005
  Serious: Yes (Hospitalization)
  Sender: FDA-Public Use
  Company Number: DE-PFIZER INC-2019383034

PATIENT
  Age: 68 Year
  Sex: Female
  Weight: 53.5 kg

DRUGS (2)
  1. METHYLPREDNISOLONE. [Suspect]
     Active Substance: METHYLPREDNISOLONE
     Indication: ACUTE GRAFT VERSUS HOST DISEASE
     Dosage: 128 MG, QD
     Route: 048
     Dates: start: 20190107
  2. BLINDED THERAPY [Suspect]
     Active Substance: INVESTIGATIONAL PRODUCT
     Indication: ACUTE GRAFT VERSUS HOST DISEASE
     Dosage: UNK
     Dates: start: 20190107

REACTIONS (2)
  - Anal haemorrhage [Unknown]
  - Graft versus host disease in gastrointestinal tract [Recovered/Resolved]

NARRATIVE: CASE EVENT DATE: 20190528
